FAERS Safety Report 5865936-3 (Version None)
Quarter: 2008Q3

REPORT INFORMATION
  Report Type: 
  Country: None (occurrence: None)
  Receive Date: 20080829
  Receipt Date: 20080820
  Transmission Date: 20090109
  Serious: Yes (Other)
  Sender: FDA-Public Use
  Company Number: IL-GENENTECH-263689

PATIENT
  Age: 53 Year
  Sex: Female

DRUGS (2)
  1. XOLAIR [Suspect]
     Indication: ASTHMA
     Dosage: 150 MG, SINGLE
     Dates: start: 20080515
  2. DIPROSPAN [Concomitant]
     Indication: DRUG USE FOR UNKNOWN INDICATION

REACTIONS (4)
  - DYSPHAGIA [None]
  - INSOMNIA [None]
  - MYALGIA [None]
  - URINARY TRACT INFECTION [None]
